FAERS Safety Report 19352231 (Version 1)
Quarter: 2021Q2

REPORT INFORMATION
  Report Type: Report from Study
  Country: US (occurrence: US)
  Receive Date: 20210531
  Receipt Date: 20210531
  Transmission Date: 20210717
  Serious: Yes (Life-Threatening, Hospitalization)
  Sender: FDA-Public Use
  Company Number: US-BAXTER-2021BAX013126

PATIENT
  Age: 20 Year
  Sex: Male
  Weight: 66 kg

DRUGS (13)
  1. CLINDAMYCIN. [Concomitant]
     Active Substance: CLINDAMYCIN
     Indication: CELLULITIS
     Route: 065
     Dates: start: 20210429
  2. ESCITALOPRAM [Concomitant]
     Active Substance: ESCITALOPRAM OXALATE
     Indication: PRODUCT USED FOR UNKNOWN INDICATION
     Dosage: DOSAGE FORM: TABLET
     Route: 065
     Dates: start: 20200105
  3. MARIJUANA [Concomitant]
     Active Substance: CANNABIS SATIVA SUBSP. INDICA TOP
     Indication: PAIN
     Dosage: REPORTED AS MEDICAL MARIJUANA
     Route: 065
     Dates: start: 20201216
  4. CYCLOPHOSPHAMIDE FOR INJECTION, USP [Suspect]
     Active Substance: CYCLOPHOSPHAMIDE
     Indication: RHABDOMYOSARCOMA
     Dosage: DAYS 1?5 OF 21 DAY CYCLE
     Route: 041
     Dates: start: 20210405, end: 20210430
  5. GRANISETRON [Concomitant]
     Active Substance: GRANISETRON
     Indication: NAUSEA
     Route: 065
     Dates: start: 20200204
  6. TOBRADEX [Concomitant]
     Active Substance: DEXAMETHASONE\TOBRAMYCIN
     Indication: EXCESSIVE GRANULATION TISSUE
     Route: 065
     Dates: start: 20210419
  7. PALBOCICLIB [Suspect]
     Active Substance: PALBOCICLIB
     Indication: RHABDOMYOSARCOMA
     Dosage: DAYS 1?14 OF 21 DAY CYCLE
     Route: 048
     Dates: start: 20210405, end: 20210503
  8. TOPOTECAN [Suspect]
     Active Substance: TOPOTECAN HYDROCHLORIDE
     Indication: RHABDOMYOSARCOMA
     Dosage: DAYS 1?5 OF 21 DAY CYCLE
     Route: 041
     Dates: start: 20210405, end: 20210430
  9. MARIJUANA [Concomitant]
     Active Substance: CANNABIS SATIVA SUBSP. INDICA TOP
     Indication: ANXIETY
  10. OXYCONTIN [Concomitant]
     Active Substance: OXYCODONE HYDROCHLORIDE
     Indication: PAIN
     Dosage: DOSAGE FORM: TABLET
     Route: 065
     Dates: start: 20210501
  11. BACTRIM [Concomitant]
     Active Substance: SULFAMETHOXAZOLE\TRIMETHOPRIM
     Indication: ANTIFUNGAL PROPHYLAXIS
     Route: 065
     Dates: start: 20200313
  12. OXYCODONE [Concomitant]
     Active Substance: OXYCODONE
     Indication: PAIN
     Dosage: DOSAGE FORM: TABLET
     Route: 065
     Dates: start: 20191014
  13. GABAPENTIN. [Concomitant]
     Active Substance: GABAPENTIN
     Indication: PAIN
     Dosage: DOSAGE FORM: TABLET
     Route: 065
     Dates: start: 20191016

REACTIONS (3)
  - Pneumonia [Recovering/Resolving]
  - Pneumothorax [Recovered/Resolved]
  - Febrile neutropenia [Recovered/Resolved]

NARRATIVE: CASE EVENT DATE: 20210503
